FAERS Safety Report 25118223 (Version 1)
Quarter: 2025Q1

REPORT INFORMATION
  Report Type: Spontaneous
  Country: FR (occurrence: FR)
  Receive Date: 20250325
  Receipt Date: 20250325
  Transmission Date: 20250408
  Serious: Yes (Life-Threatening)
  Sender: ACCORD
  Company Number: None

PATIENT
  Age: 51 Year
  Sex: Male

DRUGS (4)
  1. CARBOPLATIN [Suspect]
     Active Substance: CARBOPLATIN
     Indication: Transitional cell carcinoma
     Dates: start: 20240529, end: 20240911
  2. CISPLATIN [Suspect]
     Active Substance: CISPLATIN
     Indication: Transitional cell carcinoma
     Dosage: 20 MILLIGRAM/METER SQUARE EVERY 3 WEEKS
     Dates: start: 20230425, end: 20230621
  3. DOXORUBICIN [Suspect]
     Active Substance: DOXORUBICIN
     Indication: Transitional cell carcinoma
     Dates: start: 20230425, end: 20230621
  4. AVELUMAB [Suspect]
     Active Substance: AVELUMAB
     Indication: Transitional cell carcinoma
     Dosage: 800 MG EVERY 15 DAYS
     Dates: start: 20241002, end: 20241224

REACTIONS (1)
  - Acute myeloid leukaemia [Not Recovered/Not Resolved]

NARRATIVE: CASE EVENT DATE: 20250123
